FAERS Safety Report 20737714 (Version 1)
Quarter: 2022Q2

REPORT INFORMATION
  Report Type: Other
  Country: US (occurrence: None)
  Receive Date: 20220422
  Receipt Date: 20220422
  Transmission Date: 20220721
  Serious: Yes (Other)
  Sender: FDA-Public Use
  Company Number: US-ROCHE-2685049

PATIENT
  Age: 48 Year
  Sex: Female
  Weight: 85.806 kg

DRUGS (5)
  1. OCREVUS [Suspect]
     Active Substance: OCRELIZUMAB
     Indication: Primary progressive multiple sclerosis
     Dosage: (PRESCRIBED AS 300 MG ON DAY 1 AND DAY 15 AND 600 MG ONCE IN 6 MONTHS)
     Route: 042
     Dates: start: 20200923
  2. OCREVUS [Suspect]
     Active Substance: OCRELIZUMAB
     Indication: Relapsing-remitting multiple sclerosis
     Route: 042
  3. TIZANIDINE [Concomitant]
     Active Substance: TIZANIDINE
     Indication: Multiple sclerosis
  4. GABAPENTIN [Concomitant]
     Active Substance: GABAPENTIN
  5. BACLOFEN [Concomitant]
     Active Substance: BACLOFEN

REACTIONS (6)
  - Enteritis infectious [Not Recovered/Not Resolved]
  - Infusion related reaction [Recovered/Resolved]
  - Influenza like illness [Recovering/Resolving]
  - Rectal prolapse [Not Recovered/Not Resolved]
  - Blood pressure increased [Recovered/Resolved]
  - Weight increased [Not Recovered/Not Resolved]

NARRATIVE: CASE EVENT DATE: 20200923
